FAERS Safety Report 6354550-1 (Version None)
Quarter: 2009Q3

REPORT INFORMATION
  Report Type: 
  Country: None (occurrence: None)
  Receive Date: 20090914
  Receipt Date: 20090907
  Transmission Date: 20100115
  Serious: Yes (Hospitalization)
  Sender: FDA-Public Use
  Company Number: KR-BRISTOL-MYERS SQUIBB COMPANY-14770606

PATIENT
  Age: 59 Year
  Sex: Male
  Weight: 46 kg

DRUGS (3)
  1. CETUXIMAB [Suspect]
     Indication: GASTROOESOPHAGEAL CANCER
     Dosage: INTIAL DOSE:17AUG09 RECENT 27AUG09 CETUXIMAB 5MG/ML
     Route: 042
     Dates: start: 20090617
  2. CISPLATIN [Suspect]
     Indication: GASTROOESOPHAGEAL CANCER
     Dosage: INITIAL INF:18JUN09 RECENT INF:27AUG09 ON DAY 1-15
     Route: 042
     Dates: start: 20090618
  3. XELODA [Suspect]
     Indication: GASTROOESOPHAGEAL CANCER
     Dosage: FORMULATION:TABS ON DAY1-15 RECENT DOSE:02SEP09 INITIAL:17JUN09
     Route: 048
     Dates: start: 20090617

REACTIONS (1)
  - DECREASED APPETITE [None]
